FAERS Safety Report 12423581 (Version 1)
Quarter: 2016Q2

REPORT INFORMATION
  Report Type: Spontaneous
  Country: US (occurrence: US)
  Receive Date: 20160601
  Receipt Date: 20160601
  Transmission Date: 20160815
  Serious: No
  Sender: FDA-Public Use
  Company Number: US-NOVEN PHARMACEUTICALS, INC.-US2015000519

PATIENT
  Age: 25 Year
  Sex: Male

DRUGS (5)
  1. GABAPENTIN. [Concomitant]
     Active Substance: GABAPENTIN
     Indication: DEPRESSION
  2. DAYTRANA [Suspect]
     Active Substance: METHYLPHENIDATE
     Dosage: 20 MG, UNKNOWN
     Route: 062
     Dates: start: 201507
  3. NICOTINE. [Concomitant]
     Active Substance: NICOTINE
  4. DAYTRANA [Suspect]
     Active Substance: METHYLPHENIDATE
     Indication: ATTENTION DEFICIT/HYPERACTIVITY DISORDER
     Dosage: 15 MG, UNK
     Route: 062
     Dates: start: 201506, end: 201506
  5. GABAPENTIN. [Concomitant]
     Active Substance: GABAPENTIN
     Indication: ANXIETY
     Dosage: 400 MG, BID

REACTIONS (4)
  - Product quality issue [Unknown]
  - Drug administration error [Unknown]
  - No adverse event [Unknown]
  - Off label use [Unknown]

NARRATIVE: CASE EVENT DATE: 201506
